FAERS Safety Report 23292554 (Version 1)
Quarter: 2023Q4

REPORT INFORMATION
  Report Type: Spontaneous
  Country: US (occurrence: None)
  Receive Date: 20231212
  Receipt Date: 20231212
  Transmission Date: 20240110
  Serious: Yes (Other)
  Sender: FDA-Public Use
  Company Number: None

PATIENT
  Age: 44 Year
  Sex: Male
  Weight: 53.5 kg

DRUGS (1)
  1. CARVYKTI [Suspect]
     Active Substance: CILTACABTAGENE AUTOLEUCEL
     Indication: Plasma cell myeloma
     Dosage: 1 TOT - TOTAL ONCE INTRAVENOUS?
     Route: 042
     Dates: start: 20231122, end: 20231122

REACTIONS (4)
  - Immune effector cell-associated neurotoxicity syndrome [None]
  - Cytokine release syndrome [None]
  - Neurotoxicity [None]
  - Sedation [None]

NARRATIVE: CASE EVENT DATE: 20231130
